FAERS Safety Report 5318417-X (Version None)
Quarter: 2007Q2

REPORT INFORMATION
  Report Type: 
  Country: None (occurrence: None)
  Receive Date: 20070507
  Receipt Date: 20070430
  Transmission Date: 20071010
  Serious: Yes (Hospitalization)
  Sender: FDA-Public Use
  Company Number: IE-MERCK-0612GBR00019

PATIENT
  Age: 55 Year
  Sex: Male

DRUGS (16)
  1. SALMETEROL XINAFOATE AND FLUTICASONE PROPIONATE [Concomitant]
     Dates: start: 20011207
  2. PREGABALIN [Concomitant]
     Route: 048
  3. TRAMADOL HYDROCHLORIDE [Concomitant]
     Route: 048
  4. PROCHLORPERAZINE MALEATE [Concomitant]
     Route: 048
  5. PREDNISONE [Concomitant]
     Route: 048
  6. SINGULAIR [Suspect]
     Indication: ASTHMA
     Route: 048
     Dates: start: 20030624, end: 20061101
  7. CALCIUM CARBONATE AND CHOLECALCIFEROL [Concomitant]
     Route: 048
  8. FOSAMAX [Concomitant]
     Route: 048
  9. NUTRITIONAL SUPPLEMENTS [Concomitant]
     Route: 048
  10. SULFAMETHOXAZOLE AND TRIMETHOPRIM [Concomitant]
     Route: 048
  11. [THERAPY UNSPECIFIED] [Concomitant]
     Route: 048
  12. PREDNISONE [Concomitant]
     Route: 048
  13. PREDNISONE [Concomitant]
     Route: 048
  14. CYCLOPHOSPHAMIDE [Concomitant]
     Route: 042
  15. IPRATROPIUM BROMIDE [Concomitant]
     Route: 065
     Dates: start: 20031215
  16. DEXAMETHASONE AND NEOMYCIN SULFATE AND TRAMAZOLINE HYDROCHLORIDE [Concomitant]
     Route: 065
     Dates: start: 20031215

REACTIONS (1)
  - ALLERGIC GRANULOMATOUS ANGIITIS [None]
